FAERS Safety Report 5431231-X (Version None)
Quarter: 2007Q3

REPORT INFORMATION
  Report Type: 
  Country: None (occurrence: None)
  Receive Date: 20070830
  Receipt Date: 20070405
  Transmission Date: 20080115
  Serious: No
  Sender: FDA-Public Use
  Company Number: A0646091A

PATIENT
  Age: 32 Year
  Sex: Female

DRUGS (2)
  1. WELLBUTRIN XL [Suspect]
     Indication: DEPRESSION
     Dosage: 150MG VARIABLE DOSE
     Route: 048
  2. VITAMIN [Concomitant]

REACTIONS (5)
  - AGITATION [None]
  - ANGER [None]
  - CRYING [None]
  - IRRITABILITY [None]
  - LOSS OF LIBIDO [None]
